FAERS Safety Report 16159493 (Version 1)
Quarter: 2019Q2

REPORT INFORMATION
  Report Type: Spontaneous
  Country: AM (occurrence: AM)
  Receive Date: 20190404
  Receipt Date: 20190404
  Transmission Date: 20190711
  Serious: Yes (Hospitalization)
  Sender: FDA-Public Use
  Company Number: AM-JNJFOC-20180902273

PATIENT
  Age: 31 Year
  Sex: Male
  Weight: 87 kg

DRUGS (7)
  1. BEDAQUILINE [Suspect]
     Active Substance: BEDAQUILINE
     Indication: TUBERCULOSIS
     Dosage: 400
     Route: 048
     Dates: start: 20170630, end: 20180702
  2. PYRIDOXINE [Concomitant]
     Active Substance: PYRIDOXINE
     Route: 065
  3. LEVOFLOXACIN. [Suspect]
     Active Substance: LEVOFLOXACIN
     Indication: TUBERCULOSIS
     Dosage: 750 UNITS NOT REPORTED
     Route: 065
     Dates: start: 20170630
  4. CLOFAZIMINE [Suspect]
     Active Substance: CLOFAZIMINE
     Indication: TUBERCULOSIS
     Route: 065
     Dates: start: 20170630
  5. KANAMYCIN [Suspect]
     Active Substance: KANAMYCIN\KANAMYCIN A SULFATE
     Indication: TUBERCULOSIS
     Dosage: 1000 (UNITS NOT REPORTED)
     Route: 065
     Dates: start: 20170630, end: 20170718
  6. PARA-AMINOSALICYLIC ACID [Suspect]
     Active Substance: AMINOSALICYLIC ACID
     Indication: TUBERCULOSIS
     Dosage: 8000 UNITS NOT REPORTED
     Route: 065
     Dates: start: 20170630
  7. LINEZOLID. [Suspect]
     Active Substance: LINEZOLID
     Indication: TUBERCULOSIS
     Dosage: 600 UNITS NOT REPORTED
     Route: 065
     Dates: start: 20170728

REACTIONS (7)
  - Electrocardiogram QT prolonged [Unknown]
  - Off label use [Unknown]
  - Intentional product use issue [Unknown]
  - Polyserositis [Not Recovered/Not Resolved]
  - Hypocalcaemia [Unknown]
  - Hypomagnesaemia [Unknown]
  - Hypoacusis [Unknown]

NARRATIVE: CASE EVENT DATE: 201707
